FAERS Safety Report 13917067 (Version 1)
Quarter: 2017Q3

REPORT INFORMATION
  Report Type: Spontaneous
  Country: US (occurrence: US)
  Receive Date: 20170829
  Receipt Date: 20170829
  Transmission Date: 20171127
  Serious: Yes (Other)
  Sender: FDA-Public Use
  Company Number: US-ASTRAZENECA-2017SE85628

PATIENT
  Sex: Female

DRUGS (1)
  1. ARIMIDEX [Suspect]
     Active Substance: ANASTROZOLE
     Route: 048

REACTIONS (10)
  - Muscle mass [Unknown]
  - Decreased appetite [Unknown]
  - Vision blurred [Unknown]
  - Dyspnoea [Unknown]
  - Gait disturbance [Unknown]
  - Condition aggravated [Unknown]
  - Vomiting [Unknown]
  - Myocardial infarction [Unknown]
  - Headache [Unknown]
  - Renal failure [Unknown]

NARRATIVE: CASE EVENT DATE: 201703
